FAERS Safety Report 4441587-2 (Version None)
Quarter: 2004Q3

REPORT INFORMATION
  Report Type: 
  Country: None (occurrence: None)
  Receive Date: 20040907
  Receipt Date: 20040705
  Transmission Date: 20050211
  Serious: Yes (Other)
  Sender: FDA-Public Use
  Company Number: US-BRISTOL-MYERS SQUIBB COMPANY-12631883

PATIENT
  Age: 63 Year
  Sex: Male
  Weight: 82 kg

DRUGS (5)
  1. EXCEDRIN (MIGRAINE) [Suspect]
     Route: 048
  2. ALEVE [Suspect]
     Route: 048
     Dates: start: 20040625, end: 20040625
  3. AMILORIDE [Concomitant]
  4. SYNTHROID [Concomitant]
  5. ALLERGY SHOTS [Concomitant]
     Indication: MULTIPLE ALLERGIES
     Dosage: ROUTE: ^SHOTS^

REACTIONS (3)
  - ABDOMINAL PAIN [None]
  - PALPITATIONS [None]
  - RENAL PAIN [None]
